FAERS Safety Report 23367527 (Version 3)
Quarter: 2024Q1

REPORT INFORMATION
  Report Type: Spontaneous
  Country: US (occurrence: US)
  Receive Date: 20240104
  Receipt Date: 20240307
  Transmission Date: 20240410
  Serious: No
  Sender: FDA-Public Use
  Company Number: US-BAUSCHBL-2023BNL013813

PATIENT
  Age: 48 Year
  Sex: Female
  Weight: 74.84 kg

DRUGS (2)
  1. ALAWAY [Suspect]
     Active Substance: KETOTIFEN FUMARATE
     Indication: Eye allergy
     Dosage: 1 DROP INTO BOTH EYES AS NEEDED, FOR YEARS
     Route: 047
  2. ALAWAY [Suspect]
     Active Substance: KETOTIFEN FUMARATE
     Dosage: 1 DROP INTO BOTH EYES AS NEEDED
     Route: 047
     Dates: start: 20231223, end: 202312

REACTIONS (14)
  - Eyelid margin crusting [Not Recovered/Not Resolved]
  - Product residue present [Unknown]
  - Eye irritation [Recovering/Resolving]
  - Eye pain [Recovering/Resolving]
  - Loss of personal independence in daily activities [Unknown]
  - Eye discharge [Not Recovered/Not Resolved]
  - Conjunctivitis [Recovering/Resolving]
  - Periorbital swelling [Recovering/Resolving]
  - Eye swelling [Recovering/Resolving]
  - Eye pruritus [Recovering/Resolving]
  - Inappropriate schedule of product administration [Unknown]
  - Product quality issue [Unknown]
  - Product physical consistency issue [Unknown]
  - Poor quality product administered [Unknown]

NARRATIVE: CASE EVENT DATE: 20231201
